FAERS Safety Report 4294584-4 (Version None)
Quarter: 2004Q1

REPORT INFORMATION
  Report Type: 
  Country: None (occurrence: None)
  Receive Date: 20040213
  Receipt Date: 20040120
  Transmission Date: 20041129
  Serious: Yes (Other)
  Sender: FDA-Public Use
  Company Number: WAES 0401USA01441

PATIENT
  Age: 72 Year
  Sex: Female

DRUGS (6)
  1. XANAX [Concomitant]
  2. PREMARIN [Concomitant]
  3. PROPECIA [Suspect]
     Indication: ALOPECIA
     Route: 048
     Dates: start: 20030101, end: 20031201
  4. SYNTHROID [Concomitant]
  5. PROVERA [Concomitant]
  6. COUMADIN [Concomitant]

REACTIONS (3)
  - CEREBROVASCULAR ACCIDENT [None]
  - MEDICATION ERROR [None]
  - MENSTRUAL DISORDER [None]
